FAERS Safety Report 6763318-3 (Version None)
Quarter: 2010Q2

REPORT INFORMATION
  Report Type: 
  Country: None (occurrence: None)
  Receive Date: 20100610
  Receipt Date: 20100601
  Transmission Date: 20101027
  Serious: Yes (Other)
  Sender: FDA-Public Use
  Company Number: US-JNJFOC-20100601272

PATIENT
  Sex: Female
  Weight: 91.63 kg

DRUGS (1)
  1. ORTHO EVRA [Suspect]
     Indication: CONTRACEPTION
     Route: 062
     Dates: start: 20100401

REACTIONS (5)
  - ABORTION SPONTANEOUS [None]
  - DRUG ADMINISTERED AT INAPPROPRIATE SITE [None]
  - DRUG EXPOSURE DURING PREGNANCY [None]
  - INAPPROPRIATE SCHEDULE OF DRUG ADMINISTRATION [None]
  - PREGNANCY WITH CONTRACEPTIVE PATCH [None]
